FAERS Safety Report 20439199 (Version 1)
Quarter: 2022Q1

REPORT INFORMATION
  Report Type: Spontaneous
  Country: US (occurrence: None)
  Receive Date: 20220204
  Receipt Date: 20220204
  Transmission Date: 20220423
  Serious: Yes (Other)
  Sender: FDA-Public Use
  Company Number: None

PATIENT
  Age: 43 Year
  Sex: Male
  Weight: 117 kg

DRUGS (4)
  1. PHENYLEPHRINE HYDROCHLORIDE OPHTHALMIC [Suspect]
     Active Substance: PHENYLEPHRINE HYDROCHLORIDE
     Indication: Pupil dilation procedure
     Dosage: OTHER QUANTITY : 1 DROP(S);?OTHER FREQUENCY : ONCE DURING EXAM;?
     Route: 047
     Dates: start: 20220127, end: 20220127
  2. Adderall 10mg XR 1x/day [Concomitant]
  3. Omeprazole 20mg 1x/day [Concomitant]
  4. Olly Men^s Blackberry Gummies UPC: 0085815800502 2x/day at night [Concomitant]

REACTIONS (4)
  - Periorbital oedema [None]
  - Allergic reaction to excipient [None]
  - Eye inflammation [None]
  - Eye pruritus [None]

NARRATIVE: CASE EVENT DATE: 20220127
